FAERS Safety Report 9030515 (Version 1)
Quarter: 2013Q1

REPORT INFORMATION
  Report Type: Spontaneous
  Country: IT (occurrence: IT)
  Receive Date: 20130122
  Receipt Date: 20130122
  Transmission Date: 20140127
  Serious: Yes (Hospitalization)
  Sender: FDA-Public Use
  Company Number: IT-ASTRAZENECA-2013SE02277

PATIENT
  Age: 24697 Day
  Sex: Male

DRUGS (3)
  1. ATENOLOL [Suspect]
     Indication: HYPERTENSION
     Route: 048
     Dates: start: 20121016, end: 20121216
  2. IPERTEN [Concomitant]
     Route: 048
  3. OLMEGAN [Concomitant]
     Dosage: 20 MG+12.5 MG
     Route: 048

REACTIONS (1)
  - Tachycardia [Unknown]
